FAERS Safety Report 25585137 (Version 1)
Quarter: 2025Q3

REPORT INFORMATION
  Report Type: Spontaneous
  Country: US (occurrence: None)
  Receive Date: 20250718
  Receipt Date: 20250718
  Transmission Date: 20251021
  Serious: Yes (Hospitalization)
  Sender: FDA-CTU
  Company Number: None

PATIENT
  Age: 89 Year
  Sex: Female
  Weight: 79.4 kg

DRUGS (8)
  1. ELAHERE [Suspect]
     Active Substance: MIRVETUXIMAB SORAVTANSINE-GYNX
     Indication: Ovarian cancer
     Route: 042
     Dates: start: 20250627, end: 20250627
  2. ELAHERE [Suspect]
     Active Substance: MIRVETUXIMAB SORAVTANSINE-GYNX
     Indication: Metastases to peritoneum
  3. acetaminophen 650 mg tablet, 650 mg oral once [Concomitant]
     Dates: start: 20250627, end: 20250627
  4. dexamethasone 10 mg IV once [Concomitant]
     Dates: start: 20250627, end: 20250627
  5. dextrose 5% infusion, 500 mL IV continuous @ 20 mL/hr [Concomitant]
     Dates: start: 20250627, end: 20250627
  6. diphenhydramine 25 mg I Vonce [Concomitant]
     Dates: start: 20250627, end: 20250627
  7. palonosetron 0.25 mg IV once [Concomitant]
     Dates: start: 20250627, end: 20250627
  8. prednisolone acetate 1 % ophthalmic suspension, 1 drop both eyes once [Concomitant]
     Dates: start: 20250627, end: 20250627

REACTIONS (8)
  - Abdominal pain [None]
  - Chest pain [None]
  - Infusion related reaction [None]
  - Nausea [None]
  - Vomiting [None]
  - Body temperature decreased [None]
  - Blood pressure increased [None]
  - Abdominal pain upper [None]

NARRATIVE: CASE EVENT DATE: 20250627
